FAERS Safety Report 15065514 (Version 1)
Quarter: 2018Q2

REPORT INFORMATION
  Report Type: Spontaneous
  Country: US (occurrence: US)
  Receive Date: 20180626
  Receipt Date: 20180626
  Transmission Date: 20180711
  Serious: No
  Sender: FDA-Public Use
  Company Number: US-AUROBINDO-AUR-APL-2017-35637

PATIENT
  Sex: Male
  Weight: 99.77 kg

DRUGS (3)
  1. TESTOSTERONE. [Concomitant]
     Active Substance: TESTOSTERONE
     Indication: PRODUCT USED FOR UNKNOWN INDICATION
     Dosage: UNK
  2. NEURONTIN [Concomitant]
     Active Substance: GABAPENTIN
     Indication: PRODUCT USED FOR UNKNOWN INDICATION
     Dosage: UNK
  3. ZOLPIDEM TARTRATE TABLETS 10 MG [Suspect]
     Active Substance: ZOLPIDEM TARTRATE
     Indication: SLEEP APNOEA SYNDROME
     Dosage: 10 MG, DAILY
     Route: 048

REACTIONS (5)
  - Head discomfort [Not Recovered/Not Resolved]
  - Product size issue [Not Recovered/Not Resolved]
  - Tinnitus [Not Recovered/Not Resolved]
  - Drug ineffective [Not Recovered/Not Resolved]
  - Headache [Not Recovered/Not Resolved]
